FAERS Safety Report 16637118 (Version 2)
Quarter: 2019Q3

REPORT INFORMATION
  Report Type: Spontaneous
  Country: US (occurrence: US)
  Receive Date: 20190726
  Receipt Date: 20190808
  Transmission Date: 20191004
  Serious: No
  Sender: FDA-Public Use
  Company Number: US-JNJFOC-20190627950

PATIENT
  Sex: Female
  Weight: 83 kg

DRUGS (1)
  1. TRAMADOL HYDROCHLORIDE. [Suspect]
     Active Substance: TRAMADOL HYDROCHLORIDE
     Indication: PRODUCT USED FOR UNKNOWN INDICATION
     Dosage: 1-2 PILLS EVERY 4 TO 5 HOURS
     Route: 065

REACTIONS (2)
  - Therapeutic product effect decreased [Unknown]
  - Feeling abnormal [Unknown]
